FAERS Safety Report 7677966-X (Version None)
Quarter: 2011Q3

REPORT INFORMATION
  Report Type: 
  Country: None (occurrence: None)
  Receive Date: 20110811
  Receipt Date: 20110727
  Transmission Date: 20111222
  Serious: Yes (Hospitalization)
  Sender: FDA-Public Use
  Company Number: US-GLAXOSMITHKLINE-A0873874A

PATIENT
  Age: 60 Year
  Sex: Male
  Weight: 135 kg

DRUGS (8)
  1. INDOCIN [Concomitant]
  2. GLIPIZIDE [Concomitant]
  3. ZOCOR [Concomitant]
  4. METFORMIN HCL [Concomitant]
     Dates: end: 20090301
  5. RANITIDINE [Concomitant]
  6. MEPERGAN [Concomitant]
     Dates: end: 20090301
  7. AVANDIA [Suspect]
     Indication: DIABETES MELLITUS
     Dosage: 8MG PER DAY
     Route: 048
     Dates: start: 20050415, end: 20090301
  8. COUMADIN [Concomitant]

REACTIONS (4)
  - RENAL DISORDER [None]
  - CARDIAC FAILURE CONGESTIVE [None]
  - CARDIAC DISORDER [None]
  - RENAL FAILURE [None]
